FAERS Safety Report 7825886-X (Version None)
Quarter: 2011Q4

REPORT INFORMATION
  Report Type: 
  Country: None (occurrence: None)
  Receive Date: 20111019
  Receipt Date: 20111011
  Transmission Date: 20120403
  Serious: Yes (Congenital Anomaly)
  Sender: FDA-Public Use
  Company Number: US-GILEAD-2009-0024486

PATIENT

DRUGS (2)
  1. TENOFOVIR DISOPROXIL FUMARATE [Suspect]
     Route: 048
  2. NORDETTE-28 [Concomitant]
     Indication: CONTRACEPTION
     Dates: start: 20081003, end: 20090120

REACTIONS (1)
  - HYPOSPADIAS [None]
